FAERS Safety Report 21402140 (Version 1)
Quarter: 2022Q4

REPORT INFORMATION
  Report Type: Spontaneous
  Country: CN (occurrence: CN)
  Receive Date: 20221003
  Receipt Date: 20221003
  Transmission Date: 20230113
  Serious: Yes (Other)
  Sender: FDA-Public Use
  Company Number: CN-JNJFOC-20220960934

PATIENT
  Age: 39 Day
  Sex: Female
  Weight: 1.47 kg

DRUGS (3)
  1. MOTRIN INFANTS [Suspect]
     Active Substance: IBUPROFEN
     Indication: Patent ductus arteriosus
     Route: 045
     Dates: start: 20220913, end: 20220913
  2. MOTRIN INFANTS [Suspect]
     Active Substance: IBUPROFEN
     Route: 045
     Dates: start: 20220914, end: 20220914
  3. MOTRIN INFANTS [Suspect]
     Active Substance: IBUPROFEN
     Route: 045
     Dates: start: 20220915, end: 20220915

REACTIONS (1)
  - Urinary retention [Recovering/Resolving]

NARRATIVE: CASE EVENT DATE: 20220914
